FAERS Safety Report 9468191 (Version 1)
Quarter: 2013Q3

REPORT INFORMATION
  Report Type: Spontaneous
  Country: IT (occurrence: IT)
  Receive Date: 20130821
  Receipt Date: 20130821
  Transmission Date: 20140515
  Serious: Yes (Hospitalization)
  Sender: FDA-Public Use
  Company Number: IT-TEVA-425668ISR

PATIENT
  Age: 46 Year
  Sex: Male

DRUGS (1)
  1. CLARITROMICINA [Suspect]
     Indication: INFECTION
     Dosage: 500 MILLIGRAM DAILY;
     Route: 048
     Dates: start: 20130701, end: 20130704

REACTIONS (4)
  - Acute respiratory failure [Unknown]
  - Rash [Unknown]
  - Exfoliative rash [Unknown]
  - Stevens-Johnson syndrome [Unknown]
